FAERS Safety Report 11236403 (Version 4)
Quarter: 2015Q3

REPORT INFORMATION
  Report Type: Report from Study
  Country: NL (occurrence: NL)
  Receive Date: 20150702
  Receipt Date: 20150828
  Transmission Date: 20151125
  Serious: Yes (Hospitalization, Other)
  Sender: FDA-Public Use
  Company Number: NL-BAXALTA-2015BAX031756

PATIENT
  Age: 69 Year
  Sex: Male

DRUGS (4)
  1. KIOVIG [Suspect]
     Active Substance: HUMAN IMMUNOGLOBULIN G
     Dosage: EVERY 3 WK
     Route: 065
     Dates: start: 20150608, end: 20150608
  2. KIOVIG [Suspect]
     Active Substance: HUMAN IMMUNOGLOBULIN G
     Indication: PRIMARY IMMUNODEFICIENCY SYNDROME
     Dosage: EVERY 3 WK
     Route: 065
     Dates: start: 20150518, end: 20150518
  3. KIOVIG [Suspect]
     Active Substance: HUMAN IMMUNOGLOBULIN G
     Dosage: EVERY 3 WK
     Route: 065
     Dates: start: 20150608, end: 20150608
  4. KIOVIG [Suspect]
     Active Substance: HUMAN IMMUNOGLOBULIN G
     Indication: PRIMARY IMMUNODEFICIENCY SYNDROME
     Dosage: EVERY 3 WK
     Route: 065
     Dates: start: 20150518, end: 20150518

REACTIONS (2)
  - Sense of oppression [Unknown]
  - Pleural effusion [Recovered/Resolved]

NARRATIVE: CASE EVENT DATE: 20150602
